FAERS Safety Report 9528582 (Version 1)
Quarter: 2013Q1

REPORT INFORMATION
  Report Type: Spontaneous
  Country: US (occurrence: None)
  Receive Date: 20130327
  Receipt Date: 20130327
  Transmission Date: 20140127
  Serious: Yes (Hospitalization)
  Sender: FDA-Public Use
  Company Number: 2012-0489

PATIENT
  Age: 37 Year
  Sex: Male
  Weight: 102 kg

DRUGS (2)
  1. SOMATULINE DEPOT [Suspect]
     Dosage: 90MG (90MG, 1 IN 28)
     Dates: start: 20111215
  2. ATENOLOL (ATENOLOL) [Concomitant]

REACTIONS (2)
  - Tumour excision [None]
  - Pituitary tumour removal [None]
